FAERS Safety Report 7087039-5 (Version None)
Quarter: 2010Q4

REPORT INFORMATION
  Report Type: 
  Country: None (occurrence: None)
  Receive Date: 20101106
  Receipt Date: 20100913
  Transmission Date: 20110411
  Serious: No
  Sender: FDA-Public Use
  Company Number: US-WYE-H17507410

PATIENT
  Sex: Female
  Weight: 74.91 kg

DRUGS (7)
  1. PREMARIN [Suspect]
     Indication: PRODUCT USED FOR UNKNOWN INDICATION
     Dosage: ^125 MG^
     Route: 048
     Dates: start: 19880101
  2. AVONEX [Concomitant]
  3. CALCIUM [Interacting]
  4. VITAMINS [Interacting]
  5. MINERALS NOS [Interacting]
  6. LEVOXYL [Interacting]
  7. BACLOFEN [Interacting]

REACTIONS (7)
  - DIZZINESS [None]
  - DRUG INTERACTION [None]
  - HAIR TEXTURE ABNORMAL [None]
  - INCORRECT STORAGE OF DRUG [None]
  - NAUSEA [None]
  - SKIN WRINKLING [None]
  - VULVOVAGINAL DRYNESS [None]
